FAERS Safety Report 8273589-2 (Version None)
Quarter: 2012Q2

REPORT INFORMATION
  Report Type: 
  Country: None (occurrence: None)
  Receive Date: 20120409
  Receipt Date: 20120409
  Transmission Date: 20120825
  Serious: Yes (Other)
  Sender: FDA-Public Use
  Company Number: None

PATIENT
  Age: 16 Year
  Sex: Female

DRUGS (1)
  1. LUPRON DEPOT [Suspect]
     Dosage: 15MG Q 28 DAYS SQ
     Route: 058
     Dates: start: 20101011, end: 20120404

REACTIONS (11)
  - IRRITABILITY [None]
  - AFFECT LABILITY [None]
  - SOMNOLENCE [None]
  - WEIGHT INCREASED [None]
  - AFFECTIVE DISORDER [None]
  - APATHY [None]
  - ANGER [None]
  - PERSONALITY DISORDER [None]
  - AGITATION [None]
  - DEPRESSION [None]
  - NERVOUSNESS [None]
